FAERS Safety Report 6344281-6 (Version None)
Quarter: 2009Q3

REPORT INFORMATION
  Report Type: 
  Country: None (occurrence: None)
  Receive Date: 20090903
  Receipt Date: 20090831
  Transmission Date: 20100115
  Serious: Yes (Hospitalization)
  Sender: FDA-Public Use
  Company Number: 20096445

PATIENT
  Sex: Female

DRUGS (1)
  1. LIORESAL [Suspect]
     Indication: MUSCLE SPASTICITY
     Dosage: 720 MCG, DAILY, INTRATHECAL
     Route: 037

REACTIONS (8)
  - BODY TEMPERATURE INCREASED [None]
  - COGNITIVE DISORDER [None]
  - CONDITION AGGRAVATED [None]
  - HEART RATE INCREASED [None]
  - MUSCLE SPASTICITY [None]
  - PAIN [None]
  - PRURITUS [None]
  - WITHDRAWAL SYNDROME [None]
